FAERS Safety Report 25401523 (Version 1)
Quarter: 2025Q2

REPORT INFORMATION
  Report Type: Spontaneous
  Country: ES (occurrence: ES)
  Receive Date: 20250605
  Receipt Date: 20250605
  Transmission Date: 20250717
  Serious: Yes (Hospitalization)
  Sender: Kenvue
  Company Number: ES-KENVUE-20250600539

PATIENT

DRUGS (4)
  1. ACETAMINOPHEN [Suspect]
     Active Substance: ACETAMINOPHEN
     Indication: Product used for unknown indication
     Route: 065
  2. IBUPROFEN [Suspect]
     Active Substance: IBUPROFEN
     Indication: Product used for unknown indication
     Route: 065
  3. VALPROIC ACID [Suspect]
     Active Substance: VALPROIC ACID
     Indication: Product used for unknown indication
     Route: 065
  4. TRIMEPRAZINE [Suspect]
     Active Substance: TRIMEPRAZINE
     Indication: Product used for unknown indication
     Route: 065

REACTIONS (8)
  - Nervous system disorder [Unknown]
  - Cardiovascular disorder [Unknown]
  - Incorrect dose administered [Unknown]
  - Product administration error [Unknown]
  - Dyspepsia [Unknown]
  - Somnolence [Unknown]
  - Vomiting [Unknown]
  - Toxicity to various agents [Unknown]
